FAERS Safety Report 11247598 (Version 1)
Quarter: 2015Q3

REPORT INFORMATION
  Report Type: Spontaneous
  Country: DE (occurrence: None)
  Receive Date: 20150706
  Receipt Date: 20150706
  Transmission Date: 20151125
  Serious: Yes (Hospitalization, Other)
  Sender: FDA-Public Use
  Company Number: DE2015GSK094830

PATIENT
  Age: 35 Year
  Sex: Male
  Weight: 73 kg

DRUGS (1)
  1. TRIUMEQ [Suspect]
     Active Substance: ABACAVIR SULFATE\DOLUTEGRAVIR SODIUM\LAMIVUDINE
     Indication: HIV INFECTION
     Route: 048
     Dates: start: 20150121

REACTIONS (7)
  - Diplopia [None]
  - Mobility decreased [None]
  - Paraparesis [None]
  - Gait disturbance [None]
  - Miller Fisher syndrome [None]
  - Paraesthesia [None]
  - Facial paresis [None]

NARRATIVE: CASE EVENT DATE: 201503
